FAERS Safety Report 15681305 (Version 2)
Quarter: 2018Q4

REPORT INFORMATION
  Report Type: Report from Study
  Country: US (occurrence: US)
  Receive Date: 20181203
  Receipt Date: 20181211
  Transmission Date: 20190205
  Serious: Yes (Other)
  Sender: FDA-Public Use
  Company Number: US-ROCHE-2224274

PATIENT

DRUGS (12)
  1. ERLOTINIB [Suspect]
     Active Substance: ERLOTINIB
     Indication: NEOPLASM MALIGNANT
     Route: 065
  2. IBRUTINIB [Suspect]
     Active Substance: IBRUTINIB
     Indication: NEOPLASM MALIGNANT
     Route: 065
  3. SORAFENIB [Suspect]
     Active Substance: SORAFENIB
     Indication: NEOPLASM MALIGNANT
     Route: 065
  4. NIVOLUMAB [Suspect]
     Active Substance: NIVOLUMAB
     Indication: NEOPLASM MALIGNANT
     Route: 065
  5. PEMBROLIZUMAB. [Suspect]
     Active Substance: PEMBROLIZUMAB
     Indication: NEOPLASM MALIGNANT
     Route: 065
  6. BEVACIZUMAB. [Suspect]
     Active Substance: BEVACIZUMAB
     Indication: NEOPLASM MALIGNANT
     Route: 042
  7. IMATINIB. [Suspect]
     Active Substance: IMATINIB MESYLATE
     Indication: NEOPLASM MALIGNANT
     Route: 065
  8. IPILIMUMAB [Suspect]
     Active Substance: IPILIMUMAB
     Indication: NEOPLASM MALIGNANT
     Route: 065
  9. LAPATINIB [Suspect]
     Active Substance: LAPATINIB
     Indication: NEOPLASM MALIGNANT
     Route: 065
  10. SUNITINIB [Suspect]
     Active Substance: SUNITINIB
     Indication: NEOPLASM MALIGNANT
     Route: 065
  11. TRASTUZUMAB. [Suspect]
     Active Substance: TRASTUZUMAB
     Indication: NEOPLASM MALIGNANT
     Route: 065
  12. VEMURAFENIB. [Suspect]
     Active Substance: VEMURAFENIB
     Indication: NEOPLASM MALIGNANT
     Route: 065

REACTIONS (14)
  - Sinus node dysfunction [Unknown]
  - Supraventricular tachycardia [Unknown]
  - Atrial fibrillation [Unknown]
  - Ventricular tachycardia [Unknown]
  - Atrioventricular block second degree [Unknown]
  - Sinus tachycardia [Unknown]
  - Supraventricular extrasystoles [Unknown]
  - Atrial flutter [Unknown]
  - Tachycardia paroxysmal [Unknown]
  - Extrasystoles [Unknown]
  - Ventricular extrasystoles [Unknown]
  - Atrioventricular block first degree [Unknown]
  - Sinus bradycardia [Unknown]
  - Arrhythmia [Unknown]
